FAERS Safety Report 5204987-9 (Version None)
Quarter: 2007Q1

REPORT INFORMATION
  Report Type: 
  Country: None (occurrence: None)
  Receive Date: 20070110
  Receipt Date: 20060922
  Transmission Date: 20070707
  Serious: No
  Sender: FDA-Public Use
  Company Number: US-BRISTOL-MYERS SQUIBB COMPANY-13520788

PATIENT

DRUGS (1)
  1. ABILIFY [Suspect]
     Indication: PSYCHIATRIC SYMPTOM
     Route: 048

REACTIONS (4)
  - ADRENAL INSUFFICIENCY [None]
  - DELIRIUM [None]
  - DRUG INEFFECTIVE [None]
  - HYPOTHERMIA [None]
